FAERS Safety Report 6297161-9 (Version None)
Quarter: 2009Q3

REPORT INFORMATION
  Report Type: 
  Country: None (occurrence: None)
  Receive Date: 20090805
  Receipt Date: 20090727
  Transmission Date: 20100115
  Serious: Yes (Death, Hospitalization)
  Sender: FDA-Public Use
  Company Number: US-BIOGENIDEC-2009BI023277

PATIENT
  Age: 55 Year
  Sex: Male

DRUGS (2)
  1. TYSABRI [Suspect]
     Indication: MULTIPLE SCLEROSIS
     Route: 042
     Dates: start: 20070417, end: 20090629
  2. AMANTADINE HCL [Concomitant]
     Indication: RESPIRATORY DISORDER
     Dates: end: 20090601

REACTIONS (2)
  - INFLUENZA [None]
  - RESPIRATORY DISORDER [None]
